FAERS Safety Report 22955195 (Version 3)
Quarter: 2024Q4

REPORT INFORMATION
  Report Type: Spontaneous
  Country: US (occurrence: US)
  Receive Date: 20230918
  Receipt Date: 20241126
  Transmission Date: 20250114
  Serious: Yes (Other)
  Sender: PFIZER
  Company Number: US-PFIZER INC-202300298879

PATIENT
  Age: 65 Year
  Sex: Female
  Weight: 124.74 kg

DRUGS (2)
  1. ALTACE [Suspect]
     Active Substance: RAMIPRIL
     Indication: Blood pressure abnormal
     Dosage: 5 MG, 1X/DAY
     Route: 048
  2. ALTACE [Suspect]
     Active Substance: RAMIPRIL
     Dosage: 10 MG, 1X/DAY
     Route: 048

REACTIONS (3)
  - Atrial fibrillation [Unknown]
  - Therapeutic product effect decreased [Unknown]
  - Drug intolerance [Unknown]
